FAERS Safety Report 12090206 (Version 3)
Quarter: 2016Q2

REPORT INFORMATION
  Report Type: Spontaneous
  Country: US (occurrence: US)
  Receive Date: 20160218
  Receipt Date: 20160518
  Transmission Date: 20160815
  Serious: No
  Sender: FDA-Public Use
  Company Number: US-LEO PHARMA-240255

PATIENT
  Age: 52 Year
  Sex: Female

DRUGS (1)
  1. PICATO [Suspect]
     Active Substance: INGENOL MEBUTATE
     Indication: ACTINIC KERATOSIS
     Dates: start: 20160212, end: 20160213

REACTIONS (10)
  - Application site pain [Recovered/Resolved]
  - Drug administration error [Unknown]
  - Application site dryness [Recovered/Resolved]
  - Incorrect dose administered [Recovered/Resolved]
  - Drug administered at inappropriate site [Unknown]
  - Application site reaction [Recovered/Resolved]
  - Application site exfoliation [Recovered/Resolved]
  - Drug dispensing error [Recovered/Resolved]
  - Application site vesicles [Recovered/Resolved]
  - Application site pruritus [Recovered/Resolved]

NARRATIVE: CASE EVENT DATE: 20160212
